FAERS Safety Report 4619168-7 (Version None)
Quarter: 2005Q2

REPORT INFORMATION
  Report Type: 
  Country: None (occurrence: None)
  Receive Date: 20050321
  Receipt Date: 20040804
  Transmission Date: 20051028
  Serious: Yes (Other)
  Sender: FDA-Public Use
  Company Number: 2004-08-0287

PATIENT
  Sex: Male
  Weight: 102.0593 kg

DRUGS (2)
  1. PEG-INTRON [Suspect]
     Indication: HEPATITIS C
     Dates: end: 20040721
  2. RIBAVIRIN [Suspect]
     Indication: HEPATITIS C
     Dates: end: 20040721

REACTIONS (5)
  - ANGER [None]
  - DEPRESSION [None]
  - ERECTILE DYSFUNCTION [None]
  - VOMITING [None]
  - WEIGHT DECREASED [None]
